FAERS Safety Report 6445345-9 (Version None)
Quarter: 2009Q4

REPORT INFORMATION
  Report Type: 
  Country: None (occurrence: None)
  Receive Date: 20091112
  Receipt Date: 20091104
  Transmission Date: 20100525
  Serious: Yes (Hospitalization)
  Sender: FDA-Public Use
  Company Number: 2009SP002617

PATIENT
  Sex: Female

DRUGS (5)
  1. XOPENEX [Suspect]
     Indication: CHRONIC OBSTRUCTIVE PULMONARY DISEASE
     Dosage: 1.25 MG/ML PRN INAHALATION
     Route: 055
     Dates: end: 20090815
  2. XOPENEX HFA [Suspect]
     Indication: CHRONIC OBSTRUCTIVE PULMONARY DISEASE
     Dosage: 90 UG; Q4H; INHALATION
     Route: 055
  3. CORTICOSTEROIDS [Suspect]
  4. IPRATROPIUM BROMIDE [Suspect]
     Dosage: INHALATION
     Route: 055
     Dates: start: 20090701, end: 20090101
  5. OXYGEN [Concomitant]

REACTIONS (5)
  - CARBON DIOXIDE INCREASED [None]
  - DELIRIUM [None]
  - DYSPNOEA [None]
  - PSYCHOTIC DISORDER [None]
  - RASH [None]
